FAERS Safety Report 19024681 (Version 1)
Quarter: 2021Q1

REPORT INFORMATION
  Report Type: Spontaneous
  Country: US (occurrence: US)
  Receive Date: 20210316
  Receipt Date: 20210316
  Transmission Date: 20210420
  Serious: No
  Sender: FDA-Public Use
  Company Number: None

PATIENT
  Age: 75 Year
  Sex: Male
  Weight: 74.84 kg

DRUGS (1)
  1. NETARSUDIL (NETARSUDIL 0.02% SOLN,OPH) [Suspect]
     Active Substance: NETARSUDIL MESYLATE
     Indication: GLAUCOMA
     Dates: start: 20190415, end: 20190429

REACTIONS (4)
  - Ocular hyperaemia [None]
  - Lacrimation increased [None]
  - Erythema [None]
  - Hypersensitivity [None]

NARRATIVE: CASE EVENT DATE: 20190425
